FAERS Safety Report 9325836 (Version 1)
Quarter: 2013Q2

REPORT INFORMATION
  Report Type: Spontaneous
  Country: US (occurrence: None)
  Receive Date: 20130603
  Receipt Date: 20130603
  Transmission Date: 20140414
  Serious: No
  Sender: FDA-Public Use
  Company Number: None

PATIENT
  Age: 38 Year
  Sex: Male
  Weight: 86.18 kg

DRUGS (1)
  1. METHYLPHENIDATE ER [Suspect]
     Indication: NARCOLEPSY
     Route: 048
     Dates: start: 20130502, end: 20130508

REACTIONS (5)
  - Product substitution issue [None]
  - Product quality issue [None]
  - Disturbance in attention [None]
  - Feeling abnormal [None]
  - Sensory disturbance [None]
